FAERS Safety Report 13451630 (Version 2)
Quarter: 2017Q2

REPORT INFORMATION
  Report Type: Spontaneous
  Country: US (occurrence: US)
  Receive Date: 20170418
  Receipt Date: 20170524
  Transmission Date: 20170830
  Serious: No
  Sender: FDA-Public Use
  Company Number: US-PFIZER INC-2017159686

PATIENT
  Age: 14 Year
  Sex: Male
  Weight: 63.5 kg

DRUGS (2)
  1. WELCHOL [Concomitant]
     Active Substance: COLESEVELAM HYDROCHLORIDE
     Indication: SICK BUILDING SYNDROME
     Dosage: 6 DF, 1X/DAY (6 TABLETS RIGHT BEFORE BED EACH NIGHT)
     Route: 048
     Dates: start: 2016
  2. XELJANZ [Suspect]
     Active Substance: TOFACITINIB CITRATE
     Indication: VITILIGO
     Dosage: 5 MG, 2X/DAY
     Route: 048
     Dates: start: 201611

REACTIONS (3)
  - Dyspnoea exertional [Recovered/Resolved]
  - Product use in unapproved indication [Unknown]
  - Fatigue [Unknown]

NARRATIVE: CASE EVENT DATE: 201611
